FAERS Safety Report 9683208 (Version 1)
Quarter: 2013Q4

REPORT INFORMATION
  Report Type: Spontaneous
  Country: US (occurrence: None)
  Receive Date: 20131111
  Receipt Date: 20131111
  Transmission Date: 20140711
  Serious: No
  Sender: FDA-Public Use
  Company Number: None

PATIENT
  Age: 68 Year
  Sex: Female
  Weight: 53.2 kg

DRUGS (1)
  1. ANGIOMAX [Suspect]
     Dosage: 7.5 MG BOLUS AND 17.5 CC HR
     Dates: start: 20131105

REACTIONS (2)
  - Medical device complication [None]
  - Thrombosis [None]
